FAERS Safety Report 4861371-5 (Version None)
Quarter: 2005Q4

REPORT INFORMATION
  Report Type: 
  Country: None (occurrence: None)
  Receive Date: 20051220
  Receipt Date: 20051213
  Transmission Date: 20060501
  Serious: Yes (Hospitalization)
  Sender: FDA-Public Use
  Company Number: AU-ROCHE-428561

PATIENT
  Age: 63 Year
  Sex: Male

DRUGS (6)
  1. CEFTRIAXONE SODIUM [Suspect]
     Route: 042
     Dates: start: 20031224
  2. ERYTHROMYCIN [Suspect]
     Route: 042
     Dates: start: 20031224, end: 20031230
  3. MAXOLON [Suspect]
     Indication: DRUG USE FOR UNKNOWN INDICATION
     Route: 042
     Dates: start: 20031224
  4. CANDESARTAN [Concomitant]
  5. METOHEXAL [Concomitant]
  6. CALTRATE [Concomitant]

REACTIONS (1)
  - VENTRICULAR FIBRILLATION [None]
